FAERS Safety Report 23847378 (Version 1)
Quarter: 2024Q2

REPORT INFORMATION
  Report Type: Spontaneous
  Country: US (occurrence: US)
  Receive Date: 20240513
  Receipt Date: 20240513
  Transmission Date: 20240715
  Serious: Yes (Other)
  Sender: FDA-Public Use
  Company Number: US-REGENERON PHARMACEUTICALS, INC.-2024-067984

PATIENT

DRUGS (1)
  1. EVKEEZA [Suspect]
     Active Substance: EVINACUMAB-DGNB
     Indication: Product used for unknown indication
     Dosage: UNK
     Dates: end: 202404

REACTIONS (4)
  - Immunodeficiency [Unknown]
  - Head discomfort [Not Recovered/Not Resolved]
  - Lethargy [Not Recovered/Not Resolved]
  - Muscular weakness [Not Recovered/Not Resolved]
